FAERS Safety Report 25797034 (Version 1)
Quarter: 2025Q3

REPORT INFORMATION
  Report Type: Spontaneous
  Country: EU (occurrence: EU)
  Receive Date: 20250912
  Receipt Date: 20250912
  Transmission Date: 20251020
  Serious: Yes (Hospitalization, Other)
  Sender: UCB
  Company Number: EU-UCBSA-2025055948

PATIENT
  Age: 60 Year
  Sex: Female

DRUGS (8)
  1. BIMZELX [Suspect]
     Active Substance: BIMEKIZUMAB-BKZX
     Indication: Psoriasis
     Dates: start: 202309
  2. NOLPAZA [PANTOPRAZOLE SODIUM] [Concomitant]
     Indication: Product used for unknown indication
  3. ASPIRIN [Concomitant]
     Active Substance: ASPIRIN
     Indication: Product used for unknown indication
  4. PLAVIX [Concomitant]
     Active Substance: CLOPIDOGREL BISULFATE
     Indication: Product used for unknown indication
  5. MICARDIS [Concomitant]
     Active Substance: TELMISARTAN
     Indication: Product used for unknown indication
  6. ROSUVASTATIN CALCIUM [Concomitant]
     Active Substance: ROSUVASTATIN CALCIUM
     Indication: Product used for unknown indication
  7. CYMBALTA [Concomitant]
     Active Substance: DULOXETINE HYDROCHLORIDE
     Indication: Product used for unknown indication
  8. QUETIAPINE FUMARATE [Concomitant]
     Active Substance: QUETIAPINE FUMARATE
     Indication: Product used for unknown indication

REACTIONS (2)
  - Ischaemic stroke [Unknown]
  - Carotid arteriosclerosis [Unknown]

NARRATIVE: CASE EVENT DATE: 20250101
